FAERS Safety Report 5678830-8 (Version None)
Quarter: 2008Q1

REPORT INFORMATION
  Report Type: 
  Country: None (occurrence: None)
  Receive Date: 20080320
  Receipt Date: 20080306
  Transmission Date: 20080703
  Serious: Yes (Other)
  Sender: FDA-Public Use
  Company Number: 2008S1003962

PATIENT
  Age: 57 Year
  Sex: Male

DRUGS (4)
  1. AZATHIOPRINE [Suspect]
     Indication: DRUG USE FOR UNKNOWN INDICATION
  2. METHYLPREDNISOLONE [Suspect]
  3. CYCLOSPORINE [Suspect]
  4. STEROIDS (NO PREF. NAME) [Suspect]
     Dosage: ORAL, ORAL
     Route: 048

REACTIONS (5)
  - ACUTE FEBRILE NEUTROPHILIC DERMATOSIS [None]
  - CONDITION AGGRAVATED [None]
  - NECROSIS [None]
  - NECROTISING FASCIITIS [None]
  - PYREXIA [None]
